FAERS Safety Report 7794849-5 (Version None)
Quarter: 2011Q4

REPORT INFORMATION
  Report Type: 
  Country: None (occurrence: None)
  Receive Date: 20111004
  Receipt Date: 20110920
  Transmission Date: 20120403
  Serious: Yes (Hospitalization, Other)
  Sender: FDA-Public Use
  Company Number: PHHY2011BR58541

PATIENT
  Sex: Female

DRUGS (4)
  1. DIOVAN [Suspect]
     Dosage: 1 DF, 160 MG
     Route: 048
     Dates: start: 20110625
  2. PROPYLTHIOURACIL [Suspect]
     Indication: HYPERTHYROIDISM
     Dosage: 2 DF, UNK
     Route: 048
     Dates: start: 20100601
  3. PROPYLTHIOURACIL [Suspect]
     Dosage: 4 DF, UNK
     Route: 048
     Dates: start: 20110601
  4. DIOVAN [Suspect]
     Indication: HYPERTENSION
     Dosage: 1 DF, 80 MG
     Route: 048

REACTIONS (2)
  - ARRHYTHMIA [None]
  - HYPERTHYROIDISM [None]
